FAERS Safety Report 7934117-1 (Version None)
Quarter: 2011Q4

REPORT INFORMATION
  Report Type: 
  Country: None (occurrence: None)
  Receive Date: 20111118
  Receipt Date: 20111103
  Transmission Date: 20120403
  Serious: Yes (Hospitalization)
  Sender: FDA-Public Use
  Company Number: 1000021661

PATIENT
  Age: 84 Year
  Sex: Male
  Weight: 79 kg

DRUGS (21)
  1. SPIRIVA (TIOTROPIUM BROMIDE) (TIOTROPIUM BROMIDE) [Concomitant]
  2. ACETAMINOPHEN [Concomitant]
  3. AVELOX [Concomitant]
  4. TEVETEN (EPROSARTAN MESILATE) (600 MILLIGRAM) (EPROSARTAN MESILATE) [Concomitant]
  5. PREDNISOLON (PREDNISOLONE) (PREDNISOLONE) [Concomitant]
  6. BUDESONIDE [Concomitant]
  7. SORTIS (ATORVASTATIN CALCIUM) (ATOROVASTATIN CALCIUM) [Concomitant]
  8. PLAVIX (CLOPIDOGREL BISULFATE (75 MILLIGRAM0 (CLOPIDOGREL BISULFATE) [Concomitant]
  9. ROFLUMILAST (ROFLUMILAST) (TABLETS) [Suspect]
     Indication: CHRONIC OBSTRUCTIVE PULMONARY DISEASE
     Dosage: 500 MCG, ORAL
     Route: 048
     Dates: start: 20110215, end: 20110225
  10. CORTISONE ACETATE [Concomitant]
  11. FORADIL (FORMOTEROL) (FORMOTEROL FUMARATE) (FORMOTEROL FUMARATE) [Concomitant]
  12. ACETYLCYSTEINE (ACETYLCYSTEINE) (ACETYLCYSTEINE) [Concomitant]
  13. OXYGEN (OXYGEN) (OXYGEN) [Concomitant]
  14. TOREM (TORASEMIDE) (TORASEMIDE) (TORASEMIDE) [Concomitant]
  15. ACETYLSALICYLIC ACID SRT [Concomitant]
  16. ATACAND (CANDESARTAN CILEXETIL) (CANDESARTAN CILEXETIL) (CANDESARTAN C [Concomitant]
  17. FUROSEMIDE (FUROSEMIDE) (60 MILLIGRAM) (FUROSEMIDE) [Concomitant]
  18. PANTOZOL (PANTOPRAZOLE) (PANTOPRAZOLE) (PANTOPRAZOLE) [Concomitant]
  19. ALLOPURINOL [Concomitant]
  20. DILTAHEXAL (DILTIAZEM HYDROCHLORIDE) (DILTIAZEM HYDROCHLORIDE) [Concomitant]
  21. FERROUS SULFATE (FERROUS SULFATE) (FERROUS SULFATE) [Concomitant]

REACTIONS (7)
  - GENERAL PHYSICAL HEALTH DETERIORATION [None]
  - MELAENA [None]
  - CHRONIC OBSTRUCTIVE PULMONARY DISEASE [None]
  - CONDITION AGGRAVATED [None]
  - PLEURAL FIBROSIS [None]
  - DYSPNOEA [None]
  - NAUSEA [None]
